FAERS Safety Report 5861052-5 (Version None)
Quarter: 2008Q3

REPORT INFORMATION
  Report Type: 
  Country: None (occurrence: None)
  Receive Date: 20080827
  Receipt Date: 20080130
  Transmission Date: 20090109
  Serious: No
  Sender: FDA-Public Use
  Company Number: US-ABBOTT-08P-163-0436023-00

PATIENT
  Age: 51 Year
  Sex: Male

DRUGS (2)
  1. NIASPAN [Suspect]
     Indication: DRUG USE FOR UNKNOWN INDICATION
     Route: 048
     Dates: start: 20071201, end: 20080124
  2. NIASPAN [Suspect]
     Route: 048
     Dates: start: 20060101, end: 20071201

REACTIONS (2)
  - MYALGIA [None]
  - RASH [None]
